FAERS Safety Report 11212429 (Version 1)
Quarter: 2015Q2

REPORT INFORMATION
  Report Type: Spontaneous
  Country: GB (occurrence: GB)
  Receive Date: 20150623
  Receipt Date: 20150623
  Transmission Date: 20150821
  Serious: Yes (Hospitalization)
  Sender: FDA-Public Use
  Company Number: GB-TEVA-570473ACC

PATIENT
  Age: 58 Year
  Sex: Female
  Weight: 56 kg

DRUGS (3)
  1. ERYTHROMYCIN. [Suspect]
     Active Substance: ERYTHROMYCIN
     Dates: start: 20150526
  2. METRONIDAZOLE. [Concomitant]
     Active Substance: METRONIDAZOLE
     Dosage: 3 DOSAGE FORMS DAILY;
     Dates: start: 20150601
  3. ESTRADIOL. [Concomitant]
     Active Substance: ESTRADIOL
     Dosage: .2857 DOSAGE FORMS DAILY;
     Dates: start: 20140319

REACTIONS (3)
  - Malaise [Recovered/Resolved]
  - Vomiting [Recovered/Resolved]
  - Diarrhoea [Recovered/Resolved]

NARRATIVE: CASE EVENT DATE: 20150601
